FAERS Safety Report 18925976 (Version 3)
Quarter: 2021Q2

REPORT INFORMATION
  Report Type: Spontaneous
  Country: JP (occurrence: JP)
  Receive Date: 20210222
  Receipt Date: 20210524
  Transmission Date: 20210717
  Serious: Yes (Hospitalization, Other)
  Sender: FDA-Public Use
  Company Number: JP-BRISTOL-MYERS SQUIBB COMPANY-BMS-2021-015950

PATIENT
  Age: 61 Year
  Sex: Female
  Weight: 49 kg

DRUGS (7)
  1. OPDIVO [Suspect]
     Active Substance: NIVOLUMAB
     Dosage: 240 MILLIGRAM
     Route: 041
     Dates: start: 20201223, end: 20201223
  2. OLOPATADINE HYDROCHLORIDE. [Concomitant]
     Active Substance: OLOPATADINE HYDROCHLORIDE
     Indication: PRODUCT USED FOR UNKNOWN INDICATION
     Dosage: 5 MILLIGRAM, QD
     Route: 048
     Dates: start: 20200915, end: 20201208
  3. OPDIVO [Suspect]
     Active Substance: NIVOLUMAB
     Dosage: 240 MILLIGRAM
     Route: 041
     Dates: start: 20210203, end: 20210203
  4. OXINORM [OXYCODONE HYDROCHLORIDE] [Concomitant]
     Active Substance: OXYCODONE HYDROCHLORIDE
     Indication: PRODUCT USED FOR UNKNOWN INDICATION
     Dosage: 5 MG, 3?5 TIMES
     Route: 048
     Dates: start: 20200526
  5. OPDIVO [Suspect]
     Active Substance: NIVOLUMAB
     Indication: HEAD AND NECK CANCER
     Dosage: 240 MILLIGRAM
     Route: 041
     Dates: start: 20200609, end: 20201110
  6. FENTOS [Concomitant]
     Active Substance: FENTANYL
     Indication: PRODUCT USED FOR UNKNOWN INDICATION
     Dosage: 2 MG, EVERYDAY
     Route: 062
     Dates: start: 20200526
  7. CALONAL [Concomitant]
     Active Substance: ACETAMINOPHEN
     Indication: PRODUCT USED FOR UNKNOWN INDICATION
     Dosage: 400 MILLIGRAM, Q8H
     Route: 048
     Dates: start: 20200825

REACTIONS (2)
  - Cholangitis [Not Recovered/Not Resolved]
  - Cholecystitis acute [Not Recovered/Not Resolved]

NARRATIVE: CASE EVENT DATE: 20201119
